FAERS Safety Report 7211607-0 (Version None)
Quarter: 2010Q4

REPORT INFORMATION
  Report Type: 
  Country: None (occurrence: None)
  Receive Date: 20101227
  Receipt Date: 20101213
  Transmission Date: 20110411
  Serious: Yes (Hospitalization)
  Sender: FDA-Public Use
  Company Number: CIP05000081

PATIENT
  Age: 78 Year
  Sex: Female

DRUGS (6)
  1. FURADANTIN [Suspect]
     Indication: URINARY TRACT INFECTION
     Dosage: 50 MG THREE TIMES DAILY, ORAL; 50 MG THREE TIMES DAILY
     Route: 048
     Dates: start: 20041208, end: 20041212
  2. FURADANTIN [Suspect]
     Indication: URINARY TRACT INFECTION
     Dosage: 50 MG THREE TIMES DAILY, ORAL; 50 MG THREE TIMES DAILY
     Route: 048
     Dates: start: 20030601
  3. VASTAREL ^BIOPHARMA^ (TRIMETAZIDINE HYDROCHLORIDE) [Concomitant]
  4. NITROGLYCERIN SPRAY [Concomitant]
  5. IRBESARTAN [Concomitant]
  6. INFLUENZA VACCINE (INFLUENZA VACCINE) [Concomitant]

REACTIONS (3)
  - HENOCH-SCHONLEIN PURPURA [None]
  - PETECHIAE [None]
  - RENAL SCAN ABNORMAL [None]
